FAERS Safety Report 7671176-8 (Version None)
Quarter: 2011Q3

REPORT INFORMATION
  Report Type: 
  Country: None (occurrence: None)
  Receive Date: 20110808
  Receipt Date: 20110808
  Transmission Date: 20111222
  Serious: No
  Sender: FDA-Public Use
  Company Number: None

PATIENT
  Sex: Female

DRUGS (1)
  1. HUMIRA [Suspect]
     Indication: CROHN'S DISEASE
     Dosage: 40MG EVERY 10 DAYS SUBCUTANEOUSLY
     Route: 058
     Dates: start: 20101016

REACTIONS (2)
  - AMNESIA [None]
  - APHASIA [None]
